FAERS Safety Report 9669737 (Version 1)
Quarter: 2013Q4

REPORT INFORMATION
  Report Type: Spontaneous
  Country: US (occurrence: None)
  Receive Date: 20131104
  Receipt Date: 20131104
  Transmission Date: 20140711
  Serious: No
  Sender: FDA-Public Use
  Company Number: None

PATIENT
  Age: 58 Year
  Sex: Male

DRUGS (1)
  1. PREPOPIK [Suspect]
     Indication: PREOPERATIVE CARE
     Dates: start: 201308

REACTIONS (2)
  - Nausea [None]
  - Muscle spasms [None]
